FAERS Safety Report 8328068-0 (Version None)
Quarter: 2012Q2

REPORT INFORMATION
  Report Type: 
  Country: None (occurrence: None)
  Receive Date: 20120502
  Receipt Date: 20120426
  Transmission Date: 20120825
  Serious: Yes (Hospitalization)
  Sender: FDA-Public Use
  Company Number: PHEH2012US006142

PATIENT
  Sex: Male

DRUGS (5)
  1. PULMOZYME [Concomitant]
  2. TOBI [Suspect]
     Indication: CYSTIC FIBROSIS
     Dosage: 300 MG, BID, EVERY 28 DAYS
  3. ENZYMES [Concomitant]
  4. ALBUTEROL [Concomitant]
  5. ZITHROMAX [Concomitant]

REACTIONS (3)
  - UNDERWEIGHT [None]
  - PNEUMOTHORAX [None]
  - LUNG DISORDER [None]
